FAERS Safety Report 13186144 (Version 1)
Quarter: 2017Q1

REPORT INFORMATION
  Report Type: Spontaneous
  Country: US (occurrence: US)
  Receive Date: 20170204
  Receipt Date: 20170204
  Transmission Date: 20170428
  Serious: No
  Sender: FDA-Public Use
  Company Number: US-TEVA-732808ACC

PATIENT
  Age: 37 Year
  Sex: Female

DRUGS (3)
  1. TIZANIDINE CAP [Concomitant]
  2. RITALIN LA CAP [Concomitant]
  3. COPAXONE [Suspect]
     Active Substance: GLATIRAMER ACETATE
     Indication: MULTIPLE SCLEROSIS
     Dosage: 17.1429 MILLIGRAM/MILLILITERS DAILY; PREFILLED SYRINGE
     Route: 058
     Dates: start: 20160525

REACTIONS (2)
  - Fall [Unknown]
  - Injection site reaction [Unknown]

NARRATIVE: CASE EVENT DATE: 20161021
